FAERS Safety Report 9336500 (Version 2)
Quarter: 2013Q2

REPORT INFORMATION
  Report Type: Spontaneous
  Country: FI (occurrence: FI)
  Receive Date: 20130607
  Receipt Date: 20130618
  Transmission Date: 20140414
  Serious: Yes (Other)
  Sender: FDA-Public Use
  Company Number: FI-ROCHE-1233541

PATIENT
  Age: 29 Year
  Sex: Female

DRUGS (2)
  1. LARIAM [Suspect]
     Indication: MALARIA PROPHYLAXIS
     Route: 048
     Dates: start: 201107
  2. MALARONE [Concomitant]

REACTIONS (2)
  - Hallucination [Recovered/Resolved]
  - Fear [Recovered/Resolved]
